FAERS Safety Report 21118076 (Version 1)
Quarter: 2022Q3

REPORT INFORMATION
  Report Type: Report from Study
  Country: US (occurrence: US)
  Receive Date: 20220722
  Receipt Date: 20220722
  Transmission Date: 20221027
  Serious: Yes (Hospitalization, Other)
  Sender: FDA-Public Use
  Company Number: US-EXELIXIS-CABO-22048510

PATIENT
  Age: 76 Year
  Sex: Male
  Weight: 133 kg

DRUGS (28)
  1. CABOMETYX [Suspect]
     Active Substance: CABOZANTINIB S-MALATE
     Indication: Thyroid neoplasm
     Dosage: 40 MG, QD
     Dates: start: 20220103
  2. GABAPENTIN [Concomitant]
     Active Substance: GABAPENTIN
  3. AMLODIPINE [Concomitant]
     Active Substance: AMLODIPINE BESYLATE
  4. HYDROCHLOROTHIAZIDE [Concomitant]
     Active Substance: HYDROCHLOROTHIAZIDE
  5. ACETAMINOPHEN [Concomitant]
     Active Substance: ACETAMINOPHEN
  6. ATORVASTATIN [Concomitant]
     Active Substance: ATORVASTATIN
  7. CALCIUM\CHOLECALCIFEROL [Concomitant]
     Active Substance: CALCIUM\CHOLECALCIFEROL
  8. DULOXETINE [Concomitant]
     Active Substance: DULOXETINE
  9. GUAIFENESIN [Concomitant]
     Active Substance: GUAIFENESIN
  10. LEVOTHYROXINE SODIUM [Concomitant]
     Active Substance: LEVOTHYROXINE SODIUM
  11. LOSARTAN POTASSIUM [Concomitant]
     Active Substance: LOSARTAN POTASSIUM
  12. PANTOPRAZOLE [Concomitant]
     Active Substance: PANTOPRAZOLE
  13. PENICILLIN [Concomitant]
     Active Substance: PENICILLIN
  14. LORAZEPAM [Concomitant]
     Active Substance: LORAZEPAM
  15. TAMSULOSIN [Concomitant]
     Active Substance: TAMSULOSIN
  16. TRAMADOL [Concomitant]
     Active Substance: TRAMADOL
  17. XGEVA [Concomitant]
     Active Substance: DENOSUMAB
  18. CANNABIDIOL [Concomitant]
     Active Substance: CANNABIDIOL
  19. DIBUCAINE [Concomitant]
     Active Substance: DIBUCAINE
  20. ZOLOFT [Concomitant]
     Active Substance: SERTRALINE HYDROCHLORIDE
  21. ELIQUIS [Concomitant]
     Active Substance: APIXABAN
  22. TYLENOL [Concomitant]
     Active Substance: ACETAMINOPHEN
  23. PROTONIX [Concomitant]
     Active Substance: PANTOPRAZOLE SODIUM
  24. ATIVAN [Concomitant]
     Active Substance: LORAZEPAM
  25. MUCINEX [Concomitant]
     Active Substance: GUAIFENESIN
  26. LIPITOR [Concomitant]
     Active Substance: ATORVASTATIN CALCIUM
  27. FLOMAX [Concomitant]
     Active Substance: TAMSULOSIN HYDROCHLORIDE
  28. HYDROCHLOROTHIAZIDE [Concomitant]
     Active Substance: HYDROCHLOROTHIAZIDE

REACTIONS (12)
  - Atrial fibrillation [Unknown]
  - Pulmonary embolism [Unknown]
  - Adverse drug reaction [Unknown]
  - Peripheral swelling [Recovered/Resolved]
  - Productive cough [Recovering/Resolving]
  - Paraesthesia [Recovered/Resolved]
  - Back pain [Recovering/Resolving]
  - Bone pain [Not Recovered/Not Resolved]
  - Pain [Unknown]
  - Pain in extremity [Recovered/Resolved]
  - Arthralgia [Recovering/Resolving]
  - Neoplasm [Unknown]

NARRATIVE: CASE EVENT DATE: 20220217
